FAERS Safety Report 6679684-3 (Version None)
Quarter: 2010Q2

REPORT INFORMATION
  Report Type: 
  Country: None (occurrence: None)
  Receive Date: 20100413
  Receipt Date: 20100406
  Transmission Date: 20101027
  Serious: Yes (Other)
  Sender: FDA-Public Use
  Company Number: JP-BAYER-200914910BYL

PATIENT
  Sex: Male

DRUGS (2)
  1. NEXAVAR [Suspect]
     Indication: HEPATIC NEOPLASM MALIGNANT
     Dosage: UNIT DOSE: 200 MG
     Route: 048
     Dates: start: 20091125, end: 20091128
  2. ANTIBIOTIC PREPARATIONS [Suspect]
     Indication: PNEUMONIA MYCOPLASMAL
     Route: 065

REACTIONS (2)
  - ERYTHEMA MULTIFORME [None]
  - PNEUMONIA MYCOPLASMAL [None]
